FAERS Safety Report 5175203-1 (Version None)
Quarter: 2006Q4

REPORT INFORMATION
  Report Type: 
  Country: None (occurrence: None)
  Receive Date: 20061206
  Receipt Date: 20061124
  Transmission Date: 20070319
  Serious: Yes (Other)
  Sender: FDA-Public Use
  Company Number: 2006SP007199

PATIENT
  Sex: Female

DRUGS (2)
  1. AERIUS (DESLORATADINE)  (DESLORATADINE) [Suspect]
     Indication: RHINITIS
     Dosage: 5 MG; QD; PO
     Route: 048
  2. CETIRIZINE HCL [Concomitant]

REACTIONS (2)
  - MYALGIA [None]
  - VOMITING [None]
